FAERS Safety Report 9228092 (Version 2)
Quarter: 2013Q2

REPORT INFORMATION
  Report Type: Report from Study
  Country: DE (occurrence: DE)
  Receive Date: 20130412
  Receipt Date: 20130518
  Transmission Date: 20140414
  Serious: Yes (Death)
  Sender: FDA-Public Use
  Company Number: DE-ROCHE-1209212

PATIENT
  Sex: 0

DRUGS (3)
  1. ALTEPLASE [Suspect]
     Indication: ISCHAEMIC STROKE
     Route: 042
  2. HEPARIN SODIUM [Suspect]
     Indication: ISCHAEMIC STROKE
     Route: 065
  3. TICLOPIDINE [Suspect]
     Indication: ANTIPLATELET THERAPY
     Route: 065

REACTIONS (1)
  - Death [Fatal]
